FAERS Safety Report 20238260 (Version 2)
Quarter: 2022Q1

REPORT INFORMATION
  Report Type: Spontaneous
  Country: JP (occurrence: JP)
  Receive Date: 20211228
  Receipt Date: 20220107
  Transmission Date: 20220423
  Serious: Yes (Hospitalization)
  Sender: FDA-Public Use
  Company Number: JP-TEVA-2021-JP-1993007

PATIENT
  Age: 78 Year
  Sex: Female

DRUGS (16)
  1. BISOPROLOL [Interacting]
     Active Substance: BISOPROLOL
     Indication: Cardiac failure chronic
     Dosage: 1.25 MILLIGRAM DAILY;
     Route: 065
     Dates: start: 201708
  2. BISOPROLOL [Interacting]
     Active Substance: BISOPROLOL
     Indication: Cardiotoxicity
  3. ENALAPRIL [Suspect]
     Active Substance: ENALAPRIL
     Indication: Cardiac failure chronic
     Dosage: 2.5 MILLIGRAM DAILY;
     Route: 065
     Dates: start: 201708
  4. ENALAPRIL [Suspect]
     Active Substance: ENALAPRIL
     Indication: Cardiotoxicity
  5. TRASTUZUMAB [Suspect]
     Active Substance: TRASTUZUMAB
     Indication: Breast cancer
     Dosage: 2MG/KG WEEKLY ONCE
     Route: 065
     Dates: start: 201702
  6. PERINDOPRIL [Suspect]
     Active Substance: PERINDOPRIL
     Indication: Cardiac failure chronic
     Dosage: 6 MILLIGRAM DAILY;
     Route: 065
     Dates: start: 201709
  7. PERINDOPRIL [Suspect]
     Active Substance: PERINDOPRIL
     Indication: Cardiotoxicity
  8. DIGOXIN [Interacting]
     Active Substance: DIGOXIN
     Indication: Cardiac failure chronic
     Dosage: .062 MILLIGRAM DAILY;
     Route: 065
     Dates: start: 201711
  9. DIGOXIN [Interacting]
     Active Substance: DIGOXIN
     Indication: Cardiotoxicity
  10. VINORELBINE [Concomitant]
     Active Substance: VINORELBINE TARTRATE
     Indication: Breast cancer
     Dosage: 20MG/M2 FOR 2 MONTHS
     Route: 065
     Dates: start: 201702, end: 201704
  11. EXEMESTANE [Concomitant]
     Active Substance: EXEMESTANE
     Indication: Breast cancer
     Dosage: 25 MILLIGRAM DAILY;
     Route: 065
     Dates: start: 2017
  12. TORSEMIDE [Concomitant]
     Active Substance: TORSEMIDE
     Indication: Cardiac failure chronic
     Dosage: 4 MILLIGRAM DAILY;
     Route: 065
     Dates: start: 201708
  13. TORSEMIDE [Concomitant]
     Active Substance: TORSEMIDE
     Indication: Cardiotoxicity
     Dosage: 2 MILLIGRAM DAILY;
     Route: 065
     Dates: start: 201809
  14. SPIRONOLACTONE [Concomitant]
     Active Substance: SPIRONOLACTONE
     Indication: Cardiac failure chronic
     Dosage: 25 MILLIGRAM DAILY;
     Route: 065
     Dates: start: 201709
  15. SPIRONOLACTONE [Concomitant]
     Active Substance: SPIRONOLACTONE
     Indication: Cardiotoxicity
  16. TAMOXIFEN [Concomitant]
     Active Substance: TAMOXIFEN
     Indication: Breast cancer
     Route: 065
     Dates: start: 2017

REACTIONS (6)
  - Cardiotoxicity [Recovering/Resolving]
  - Cardiac failure chronic [Recovering/Resolving]
  - Hypotension [Unknown]
  - Pleural effusion [Recovered/Resolved]
  - Drug interaction [Unknown]
  - Therapeutic product effect decreased [Unknown]

NARRATIVE: CASE EVENT DATE: 20170101
